FAERS Safety Report 11548057 (Version 1)
Quarter: 2015Q3

REPORT INFORMATION
  Report Type: Spontaneous
  Country: US (occurrence: US)
  Receive Date: 20150924
  Receipt Date: 20150924
  Transmission Date: 20151125
  Serious: Yes (Other)
  Sender: FDA-Public Use
  Company Number: US-INCYTE CORPORATION-2014IN004094

PATIENT
  Sex: Female
  Weight: 83.45 kg

DRUGS (4)
  1. FOLIC ACID. [Concomitant]
     Active Substance: FOLIC ACID
  2. REVLIMID [Concomitant]
     Active Substance: LENALIDOMIDE
  3. VITAMIN B12 [Concomitant]
     Active Substance: CYANOCOBALAMIN
  4. JAKAFI [Suspect]
     Active Substance: RUXOLITINIB
     Indication: MYELOFIBROSIS
     Dosage: 5 MG, BID
     Route: 048
     Dates: start: 20120112, end: 20140218

REACTIONS (7)
  - Adnexa uteri mass [Unknown]
  - Contusion [Unknown]
  - Thrombocytopenia [Not Recovered/Not Resolved]
  - Hypokalaemia [Unknown]
  - Mass [Unknown]
  - Platelet count decreased [Not Recovered/Not Resolved]
  - Drug ineffective [Unknown]
